FAERS Safety Report 16074453 (Version 1)
Quarter: 2019Q1

REPORT INFORMATION
  Report Type: Report from Study
  Country: US (occurrence: US)
  Receive Date: 20190314
  Receipt Date: 20190314
  Transmission Date: 20190418
  Serious: Yes (Hospitalization)
  Sender: FDA-Public Use
  Company Number: US-ACTELION-A-NJ2019-187586

PATIENT
  Age: 45 Year
  Sex: Female
  Weight: 67.57 kg

DRUGS (2)
  1. TADALAFIL. [Suspect]
     Active Substance: TADALAFIL
     Indication: PRODUCT USED FOR UNKNOWN INDICATION
     Route: 065
  2. OPSUMIT [Suspect]
     Active Substance: MACITENTAN
     Indication: PULMONARY ARTERIAL HYPERTENSION
     Dosage: 10 MG, QD
     Route: 048

REACTIONS (7)
  - Peripheral swelling [Unknown]
  - Loss of consciousness [Unknown]
  - Dizziness [Unknown]
  - Dehydration [Unknown]
  - Limb injury [Unknown]
  - Skin abrasion [Unknown]
  - Syncope [Unknown]

NARRATIVE: CASE EVENT DATE: 20190223
